FAERS Safety Report 7375325-0 (Version None)
Quarter: 2011Q1

REPORT INFORMATION
  Report Type: 
  Country: None (occurrence: None)
  Receive Date: 20110325
  Receipt Date: 20110311
  Transmission Date: 20110831
  Serious: Yes (Hospitalization, Other)
  Sender: FDA-Public Use
  Company Number: US-BAYER-201038638NA

PATIENT
  Sex: Female
  Weight: 62.585 kg

DRUGS (8)
  1. CEPHALEXIN [Concomitant]
     Dosage: 500 MG, UNK
     Route: 048
  2. ONDANSETRON HYDROCHLORIDE [Concomitant]
     Dosage: 4 MG, UNK
     Route: 048
  3. YAZ [Suspect]
     Indication: ACNE
     Dosage: UNK
     Dates: start: 20080501, end: 20091101
  4. UNCODEABLE ^UNCLASSIFIABLE^ [Concomitant]
     Dosage: UNK
     Dates: start: 20040101
  5. NSAID'S [Concomitant]
     Dosage: UNK UNK, PRN
  6. DICYCLOMINE [Concomitant]
     Dosage: 20 MG, UNK
     Route: 048
     Dates: start: 20091016
  7. ACYCLOVIR [Concomitant]
     Dosage: 800 MG, UNK
     Route: 048
     Dates: start: 20090506
  8. METRONIDAZOLE [Concomitant]
     Dosage: 500 MG, UNK
     Route: 048
     Dates: start: 20090526

REACTIONS (2)
  - CHOLELITHIASIS [None]
  - GALLBLADDER DISORDER [None]
